FAERS Safety Report 6014269-3 (Version None)
Quarter: 2008Q4

REPORT INFORMATION
  Report Type: 
  Country: None (occurrence: None)
  Receive Date: 20081219
  Receipt Date: 20080317
  Transmission Date: 20090506
  Serious: No
  Sender: FDA-Public Use
  Company Number: A0715800A

PATIENT
  Age: 32 Year
  Sex: Female

DRUGS (2)
  1. AVODART [Suspect]
     Indication: ACCIDENTAL EXPOSURE
  2. PROPYLTHIOURACIL [Concomitant]

REACTIONS (2)
  - ACCIDENTAL EXPOSURE [None]
  - DRUG EXPOSURE DURING PREGNANCY [None]
